FAERS Safety Report 17240606 (Version 1)
Quarter: 2020Q1

REPORT INFORMATION
  Report Type: Spontaneous
  Country: US (occurrence: US)
  Receive Date: 20200107
  Receipt Date: 20200107
  Transmission Date: 20200409
  Serious: No
  Sender: FDA-Public Use
  Company Number: US-JNJFOC-20200100974

PATIENT
  Sex: Female
  Weight: 54.48 kg

DRUGS (1)
  1. WOMENS ROGAINE UNSCENTED [Suspect]
     Active Substance: MINOXIDIL
     Indication: ALOPECIA
     Dosage: DOSE AS THE LABEL INSTRUCTED?LAST ADMINISTERED ON 03/NOV/2019
     Route: 061
     Dates: start: 20191101

REACTIONS (1)
  - Insomnia [Not Recovered/Not Resolved]
